FAERS Safety Report 5876457-6 (Version None)
Quarter: 2008Q3

REPORT INFORMATION
  Report Type: 
  Country: None (occurrence: None)
  Receive Date: 20080908
  Receipt Date: 20080908
  Transmission Date: 20090109
  Serious: Yes (Death)
  Sender: FDA-Public Use
  Company Number: None

PATIENT
  Age: 50 Year
  Sex: Female
  Weight: 86 kg

DRUGS (2)
  1. ALTEPLASE 100MG GENENTECH, INC [Suspect]
     Indication: ISCHAEMIC STROKE
     Dosage: 7.8 MG ONE TIME IV BOLUS
     Route: 040
     Dates: start: 20080330, end: 20080330
  2. ALTEPLASE 100MG GENENTECH, INC [Suspect]
     Indication: ISCHAEMIC STROKE
     Dosage: 70.2 MG ONE TIME
     Route: 041

REACTIONS (2)
  - BASAL GANGLIA HAEMORRHAGE [None]
  - LETHARGY [None]
